FAERS Safety Report 13911765 (Version 1)
Quarter: 2017Q3

REPORT INFORMATION
  Report Type: Spontaneous
  Country: US (occurrence: US)
  Receive Date: 20170828
  Receipt Date: 20170828
  Transmission Date: 20171127
  Serious: No
  Sender: FDA-Public Use
  Company Number: US-ROCHE-1142515

PATIENT
  Sex: Male
  Weight: 40.41 kg

DRUGS (2)
  1. NUTROPIN [Suspect]
     Active Substance: SOMATROPIN
     Indication: GROWTH HORMONE DEFICIENCY
     Route: 058
     Dates: start: 19990630
  2. DDAVP [Concomitant]
     Active Substance: DESMOPRESSIN ACETATE
     Route: 065

REACTIONS (2)
  - Aggression [Unknown]
  - Hostility [Unknown]
